FAERS Safety Report 6700651-5 (Version None)
Quarter: 2010Q2

REPORT INFORMATION
  Report Type: 
  Country: None (occurrence: None)
  Receive Date: 20100428
  Receipt Date: 20100416
  Transmission Date: 20101027
  Serious: Yes (Other)
  Sender: FDA-Public Use
  Company Number: PHHY2010AU13598

PATIENT
  Sex: Female

DRUGS (4)
  1. GLEEVEC [Suspect]
     Indication: CHRONIC MYELOID LEUKAEMIA
     Dosage: 400 MG DAILY
     Route: 048
     Dates: start: 20100201
  2. GLEEVEC [Suspect]
     Dosage: 200 MG DAILY
     Route: 048
  3. GLEEVEC [Suspect]
     Dosage: 400 MG DAILY
     Route: 048
  4. DIURETICS [Suspect]

REACTIONS (7)
  - BLOOD POTASSIUM DECREASED [None]
  - FLUID OVERLOAD [None]
  - GASTROOESOPHAGEAL REFLUX DISEASE [None]
  - NAUSEA [None]
  - PERIORBITAL OEDEMA [None]
  - SWELLING FACE [None]
  - WEIGHT INCREASED [None]
